FAERS Safety Report 21911814 (Version 2)
Quarter: 2023Q1

REPORT INFORMATION
  Report Type: Spontaneous
  Country: JP (occurrence: JP)
  Receive Date: 20230125
  Receipt Date: 20230321
  Transmission Date: 20230418
  Serious: Yes (Life-Threatening)
  Sender: FDA-Public Use
  Company Number: JP-Eisai-202212019_FYC_P_1

PATIENT
  Age: 62 Year
  Sex: Female

DRUGS (12)
  1. FYCOMPA [Suspect]
     Active Substance: PERAMPANEL
     Indication: Epilepsy
     Route: 050
     Dates: start: 20210313, end: 20210319
  2. FYCOMPA [Suspect]
     Active Substance: PERAMPANEL
     Route: 050
     Dates: start: 20210320, end: 20210507
  3. FYCOMPA [Suspect]
     Active Substance: PERAMPANEL
     Dosage: TITRATED DOWN (BY 2 MG/2 WEEKS)
     Route: 050
     Dates: start: 20210508, end: 20210804
  4. FYCOMPA [Suspect]
     Active Substance: PERAMPANEL
     Route: 050
     Dates: start: 20210811, end: 20210824
  5. FYCOMPA [Suspect]
     Active Substance: PERAMPANEL
     Route: 050
     Dates: start: 20210825, end: 20210921
  6. FYCOMPA [Suspect]
     Active Substance: PERAMPANEL
     Route: 050
     Dates: start: 20210922, end: 20211005
  7. FYCOMPA [Suspect]
     Active Substance: PERAMPANEL
     Route: 050
     Dates: start: 20211006, end: 20211019
  8. FYCOMPA [Suspect]
     Active Substance: PERAMPANEL
     Route: 050
     Dates: start: 20211020, end: 20211103
  9. MOSAPRIDE CITRATE [Concomitant]
     Active Substance: MOSAPRIDE CITRATE
     Indication: Product used for unknown indication
     Dosage: TRANSLUMINAL
     Route: 050
  10. MAGNESIUM OXIDE [Concomitant]
     Active Substance: MAGNESIUM OXIDE
     Indication: Product used for unknown indication
     Dosage: TRANSLUMINAL
     Route: 050
  11. LEVETIRACETAM [Concomitant]
     Active Substance: LEVETIRACETAM
     Indication: Epilepsy
     Dosage: TRANSLUMINAL; DOSE AND FREQUENCY UNKNOWN
     Route: 050
  12. PHENYTOIN SODIUM [Concomitant]
     Active Substance: PHENYTOIN SODIUM
     Indication: Epilepsy
     Dosage: TRANSLUMINAL; DOSE AND FREQUENCY UNKNOWN
     Route: 050
     Dates: start: 20210313

REACTIONS (1)
  - Hypothermia [Recovered/Resolved]

NARRATIVE: CASE EVENT DATE: 20210804
